FAERS Safety Report 7424949-0 (Version None)
Quarter: 2011Q2

REPORT INFORMATION
  Report Type: 
  Country: None (occurrence: None)
  Receive Date: 20110419
  Receipt Date: 20110415
  Transmission Date: 20111010
  Serious: Yes (Death)
  Sender: FDA-Public Use
  Company Number: PHHY2011US32434

PATIENT
  Sex: Male

DRUGS (1)
  1. EXJADE [Suspect]
     Indication: BLOOD DISORDER
     Dosage: 500 MG, BID
     Route: 048

REACTIONS (1)
  - DEATH [None]
